FAERS Safety Report 7644778-2 (Version None)
Quarter: 2011Q3

REPORT INFORMATION
  Report Type: 
  Country: None (occurrence: None)
  Receive Date: 20110729
  Receipt Date: 20110722
  Transmission Date: 20111222
  Serious: Yes (Death, Other)
  Sender: FDA-Public Use
  Company Number: US-BAYER-201019910NA

PATIENT
  Age: 68 Year
  Sex: Male
  Weight: 79 kg

DRUGS (13)
  1. NORVASC [Concomitant]
     Dosage: 1-2 TABS AT BEDTIME
     Route: 048
  2. FENTANYL [Concomitant]
     Dosage: VARIOUS DOSES
     Route: 042
     Dates: start: 20031223
  3. HEPARIN [Concomitant]
     Dosage: 40,000 UNITS
     Route: 042
     Dates: start: 20031223, end: 20031223
  4. RED BLOOD CELLS [Concomitant]
     Dosage: UNK
     Dates: start: 20031223
  5. TRASYLOL [Suspect]
     Indication: PRODUCT USED FOR UNKNOWN INDICATION
     Dosage: TEST DOSE - 1ML; 100ML CARDIOPULMONARY BYPASS PRIME
     Dates: start: 20031223, end: 20031223
  6. PROTAMINE [Concomitant]
     Dosage: 35MG
     Route: 042
     Dates: start: 20031223, end: 20031223
  7. TRASYLOL [Suspect]
     Indication: ANEURYSM REPAIR
     Dosage: LOADING DOSE - 100 ML LOADING DOSE FOLLOWED BY 25MLHR INFUSION
  8. GLUCOTROL [Concomitant]
     Dosage: 5 MG, QD
     Route: 048
  9. NITROGLYCERIN [Concomitant]
     Dosage: UNK
     Route: 042
     Dates: start: 20031223
  10. FENTANYL [Concomitant]
     Dosage: 50MG X 1
     Route: 042
     Dates: start: 20031222, end: 20031222
  11. ATENOLOL [Concomitant]
     Dosage: 25 MG, QD
     Route: 048
  12. LABETALOL HCL [Concomitant]
     Dosage: 200 MG, BID
     Route: 048
  13. VANCOMYCIN [Concomitant]
     Dosage: 1200MG
     Route: 042
     Dates: start: 20031223

REACTIONS (11)
  - MULTI-ORGAN FAILURE [None]
  - RENAL IMPAIRMENT [None]
  - INJURY [None]
  - FEAR [None]
  - RENAL FAILURE [None]
  - RENAL INJURY [None]
  - STRESS [None]
  - ANXIETY [None]
  - ANHEDONIA [None]
  - DEATH [None]
  - PAIN [None]
